FAERS Safety Report 9387099 (Version 1)
Quarter: 2013Q3

REPORT INFORMATION
  Report Type: Spontaneous
  Country: SE (occurrence: SE)
  Receive Date: 20130708
  Receipt Date: 20130708
  Transmission Date: 20140515
  Serious: Yes (Death)
  Sender: FDA-Public Use
  Company Number: PHHY2013SE070436

PATIENT
  Age: 70 Year
  Sex: Male

DRUGS (3)
  1. FLUDARABINE [Suspect]
     Dosage: UNK UKN, UNK
     Route: 065
     Dates: start: 20111231
  2. CYKLOFOSFAMID [Suspect]
     Dosage: UNK UKN, UNK
     Dates: start: 20111231
  3. MABTHERA ROCHE [Suspect]
     Dosage: UNK UKN, UNK
     Route: 065

REACTIONS (7)
  - Splenomegaly [Fatal]
  - Serum ferritin increased [Fatal]
  - C-reactive protein increased [Fatal]
  - Pyrexia [Fatal]
  - Histiocytosis haematophagic [Fatal]
  - Hepatic function abnormal [Fatal]
  - Liver disorder [Fatal]
